FAERS Safety Report 16262474 (Version 1)
Quarter: 2019Q2

REPORT INFORMATION
  Report Type: Spontaneous
  Country: GB (occurrence: GB)
  Receive Date: 20190501
  Receipt Date: 20190501
  Transmission Date: 20190711
  Serious: Yes (Hospitalization)
  Sender: FDA-Public Use
  Company Number: GB-BIOGEN-2019BI00731360

PATIENT
  Age: 51 Year
  Sex: Male

DRUGS (2)
  1. LEMTRADA [Suspect]
     Active Substance: ALEMTUZUMAB
     Indication: PRODUCT USED FOR UNKNOWN INDICATION
     Dosage: 12 MG/1.2 ML
     Route: 065
  2. TECFIDERA [Suspect]
     Active Substance: DIMETHYL FUMARATE
     Indication: PRODUCT USED FOR UNKNOWN INDICATION
     Route: 065
     Dates: start: 201510, end: 2018

REACTIONS (7)
  - Abnormal loss of weight [Unknown]
  - Rash [Unknown]
  - Liver function test abnormal [Unknown]
  - Chills [Unknown]
  - Pyrexia [Unknown]
  - Acute kidney injury [Unknown]
  - Palmar erythema [Unknown]
